FAERS Safety Report 23751093 (Version 3)
Quarter: 2024Q2

REPORT INFORMATION
  Report Type: Report from Study
  Country: US (occurrence: US)
  Receive Date: 20240417
  Receipt Date: 20240515
  Transmission Date: 20240716
  Serious: Yes (Other)
  Sender: FDA-Public Use
  Company Number: US-UCBSA-2024016588

PATIENT
  Sex: Female

DRUGS (3)
  1. ZILUCOPLAN [Suspect]
     Active Substance: ZILUCOPLAN
     Indication: Myasthenia gravis
     Dosage: 32.4 MILLIGRAM, ONCE DAILY (QD)
     Route: 058
     Dates: start: 20240123, end: 202403
  2. PREDNISONE [Concomitant]
     Active Substance: PREDNISONE
     Indication: Product used for unknown indication
     Dosage: WENT BACK UP TO PREDNISONE 30MG
     Dates: start: 202403
  3. PREDNISONE [Concomitant]
     Active Substance: PREDNISONE
     Dosage: THEN WHEN SHE RESTARTED ZILBRYSQ SHE WENT DOWN TO PREDNISONE 10 MG
     Dates: start: 20240406

REACTIONS (3)
  - Myasthenia gravis [Not Recovered/Not Resolved]
  - Insurance issue [Unknown]
  - Therapy interrupted [Unknown]

NARRATIVE: CASE EVENT DATE: 20240101
